FAERS Safety Report 10010812 (Version 1)
Quarter: 2014Q1

REPORT INFORMATION
  Report Type: Spontaneous
  Country: US (occurrence: None)
  Receive Date: 20140304
  Receipt Date: 20140304
  Transmission Date: 20141002
  Serious: Yes (Other)
  Sender: FDA-Public Use
  Company Number: RB-42512-2012

PATIENT
  Age: 27 Year
  Sex: Male

DRUGS (4)
  1. SUBOXONE 8 MG [Suspect]
     Indication: DRUG DEPENDENCE
     Dosage: (SUBOXONE 8 MG QD, SUBOXONE FILM SUBLINGUAL)?
     Route: 060
     Dates: start: 201204, end: 201205
  2. SUBOXONE 8 MG [Suspect]
     Indication: DRUG DEPENDENCE
     Route: 060
     Dates: start: 201204, end: 201204
  3. SUBUTEX 8 MG [Suspect]
     Indication: DRUG DEPENDENCE
     Dates: start: 201210
  4. OPIOIDS [Suspect]
     Indication: PRODUCT USED FOR UNKNOWN INDICATION
     Dosage: DOSING DETAILS UNKNOWN
     Dates: end: 201210

REACTIONS (6)
  - Substance abuse [None]
  - Oral mucosal blistering [None]
  - Hypersensitivity [None]
  - Throat tightness [None]
  - Nausea [None]
  - Vomiting [None]
